FAERS Safety Report 9512320 (Version 1)
Quarter: 2013Q3

REPORT INFORMATION
  Report Type: Spontaneous
  Country: US (occurrence: US)
  Receive Date: 20130910
  Receipt Date: 20130910
  Transmission Date: 20140515
  Serious: No
  Sender: FDA-Public Use
  Company Number: -SAAVPROD-BMS17226879

PATIENT
  Age: 45 Year
  Sex: Male
  Weight: 108.84 kg

DRUGS (1)
  1. IRBESARTAN [Suspect]
     Dosage: INCREASE TO 300MG

REACTIONS (2)
  - Blood pressure increased [Unknown]
  - Medication error [Unknown]
